FAERS Safety Report 5867705-7 (Version None)
Quarter: 2008Q3

REPORT INFORMATION
  Report Type: 
  Country: None (occurrence: None)
  Receive Date: 20080902
  Receipt Date: 20080121
  Transmission Date: 20090109
  Serious: No
  Sender: FDA-Public Use
  Company Number: US-ABBOTT-08P-163-0434785-00

PATIENT
  Sex: Female
  Weight: 63.56 kg

DRUGS (1)
  1. DIVALPROEX SODIUM [Suspect]
     Indication: MIGRAINE
     Route: 048
     Dates: start: 19940101, end: 20071111

REACTIONS (8)
  - BRADYKINESIA [None]
  - DRUG EFFECT DECREASED [None]
  - FINE MOTOR DELAY [None]
  - GAIT DISTURBANCE [None]
  - HOT FLUSH [None]
  - PARESIS [None]
  - STRESS [None]
  - TREMOR [None]
